FAERS Safety Report 7921128-5 (Version None)
Quarter: 2011Q4

REPORT INFORMATION
  Report Type: 
  Country: None (occurrence: None)
  Receive Date: 20111117
  Receipt Date: 20111110
  Transmission Date: 20120403
  Serious: Yes (Other)
  Sender: FDA-Public Use
  Company Number: PHHY2011GB099087

PATIENT
  Sex: Male

DRUGS (2)
  1. METHOTREXATE [Suspect]
     Dosage: UNK
     Dates: start: 20111001
  2. HUMIRA [Suspect]
     Indication: PSORIASIS
     Dosage: UNK
     Dates: start: 20111001

REACTIONS (1)
  - RENAL CELL CARCINOMA [None]
